FAERS Safety Report 7158323-1 (Version None)
Quarter: 2010Q4

REPORT INFORMATION
  Report Type: 
  Country: None (occurrence: None)
  Receive Date: 20101214
  Receipt Date: 20101207
  Transmission Date: 20110411
  Serious: Yes (Hospitalization)
  Sender: FDA-Public Use
  Company Number: US-US-EMD SERONO, INC.-7031108

PATIENT
  Sex: Female

DRUGS (3)
  1. REBIF [Suspect]
     Indication: PRODUCT USED FOR UNKNOWN INDICATION
     Route: 058
     Dates: start: 20040112
  2. COPAXONE [Suspect]
  3. MANY NATURAL PLANT MEDICATIONS [Concomitant]

REACTIONS (2)
  - INJECTION SITE PAIN [None]
  - THERMAL BURN [None]
